FAERS Safety Report 10065208 (Version 1)
Quarter: 2014Q2

REPORT INFORMATION
  Report Type: Spontaneous
  Country: US (occurrence: None)
  Receive Date: 20140404
  Receipt Date: 20140404
  Transmission Date: 20141212
  Serious: Yes (Hospitalization)
  Sender: FDA-Public Use
  Company Number: 2014-000855

PATIENT
  Age: 67 Year
  Sex: Female

DRUGS (3)
  1. DELZICOL [Suspect]
     Indication: COLITIS ULCERATIVE
     Route: 048
     Dates: start: 2013
  2. PROBIOTICS NOS (PROBIOTICS NOS) [Concomitant]
  3. SYNTHROID (LEVOTHYROXINE SODIUM) [Concomitant]

REACTIONS (4)
  - Colitis ischaemic [None]
  - Colitis microscopic [None]
  - Bowel movement irregularity [None]
  - Constipation [None]
